FAERS Safety Report 5554853-4 (Version None)
Quarter: 2007Q4

REPORT INFORMATION
  Report Type: 
  Country: None (occurrence: None)
  Receive Date: 20071213
  Receipt Date: 20071130
  Transmission Date: 20080405
  Serious: Yes (Other)
  Sender: FDA-Public Use
  Company Number: AR-AMGEN-US255696

PATIENT
  Age: 42 Year
  Sex: Female

DRUGS (5)
  1. ENBREL [Suspect]
     Indication: DERMATOMYOSITIS
     Route: 058
     Dates: start: 20070601
  2. ERGOCALCIFEROL [Concomitant]
     Indication: OSTEOPOROSIS
     Dosage: UNKNOWN
     Route: 065
  3. CALCIUM [Concomitant]
     Indication: OSTEOPOROSIS
     Dosage: UNKNOWN DOSE
     Route: 065
  4. CALCIUM PHOSPHATE/MAGNESIUM TRISILICATE/PREDNISONE [Concomitant]
     Dosage: 20 MG; UNSPECIFIED FREQUENCY
     Route: 048
  5. ALENDRONATE SODIUM [Concomitant]
     Indication: OSTEOPOROSIS
     Dosage: UNKNOWN DOSE
     Route: 065

REACTIONS (2)
  - DEPRESSION [None]
  - SUICIDAL IDEATION [None]
